FAERS Safety Report 5465768-4 (Version None)
Quarter: 2007Q3

REPORT INFORMATION
  Report Type: 
  Country: None (occurrence: None)
  Receive Date: 20070924
  Receipt Date: 20070918
  Transmission Date: 20080115
  Serious: Yes (Other)
  Sender: FDA-Public Use
  Company Number: B0480938A

PATIENT
  Age: 61 Year
  Sex: Male

DRUGS (1)
  1. HYCAMTIN [Suspect]
     Indication: DRUG USE FOR UNKNOWN INDICATION
     Dosage: .95MG PER DAY
     Route: 065
     Dates: start: 20060130, end: 20060224

REACTIONS (29)
  - ALOPECIA [None]
  - ANOREXIA [None]
  - BLOOD LACTATE DEHYDROGENASE DECREASED [None]
  - BLOOD MAGNESIUM DECREASED [None]
  - BLOOD MAGNESIUM INCREASED [None]
  - BLOOD PHOSPHORUS [None]
  - BLOOD PHOSPHORUS INCREASED [None]
  - BLOOD POTASSIUM DECREASED [None]
  - BLOOD SODIUM DECREASED [None]
  - BLOOD UREA INCREASED [None]
  - CONSTIPATION [None]
  - DEAFNESS [None]
  - GLUCOSE URINE PRESENT [None]
  - HAEMOGLOBIN DECREASED [None]
  - HEADACHE [None]
  - HICCUPS [None]
  - INSOMNIA [None]
  - NAUSEA [None]
  - NEUTROPHIL COUNT DECREASED [None]
  - OTITIS MEDIA [None]
  - PERFORMANCE STATUS DECREASED [None]
  - PROTEIN URINE PRESENT [None]
  - PRURITUS [None]
  - RED BLOOD CELL COUNT DECREASED [None]
  - RED BLOOD CELLS URINE POSITIVE [None]
  - URINARY SEDIMENT PRESENT [None]
  - VOMITING [None]
  - WHITE BLOOD CELL COUNT DECREASED [None]
  - WHITE BLOOD CELLS URINE POSITIVE [None]
